FAERS Safety Report 14661640 (Version 1)
Quarter: 2018Q1

REPORT INFORMATION
  Report Type: Spontaneous
  Country: US (occurrence: US)
  Receive Date: 20180320
  Receipt Date: 20180320
  Transmission Date: 20180509
  Serious: Yes (Other)
  Sender: FDA-Public Use
  Company Number: US-MALLINCKRODT-T201801045

PATIENT
  Age: 75 Year
  Sex: Female

DRUGS (2)
  1. H.P. ACTHAR [Suspect]
     Active Substance: CORTICOTROPIN
     Indication: DRY EYE
  2. H.P. ACTHAR [Suspect]
     Active Substance: CORTICOTROPIN
     Indication: KERATITIS
     Dosage: 80 UNITS TWICE A WEEK
     Route: 058
     Dates: start: 201711, end: 2018

REACTIONS (1)
  - Addison^s disease [Unknown]
